FAERS Safety Report 5534428-3 (Version None)
Quarter: 2007Q4

REPORT INFORMATION
  Report Type: 
  Country: None (occurrence: None)
  Receive Date: 20071205
  Receipt Date: 20071127
  Transmission Date: 20080405
  Serious: Yes (Hospitalization)
  Sender: FDA-Public Use
  Company Number: A0653958B

PATIENT
  Sex: Female
  Weight: 3 kg

DRUGS (7)
  1. LAMOTRIGINE [Suspect]
     Indication: BIPOLAR DISORDER
  2. LITHIUM CARBONATE [Concomitant]
     Dosage: 1350MG PER DAY
  3. TOPAMAX [Concomitant]
     Dosage: 300MG PER DAY
  4. ABILIFY [Concomitant]
     Dosage: 5MG PER DAY
  5. LORAZEPAM [Concomitant]
     Dosage: 2MG PER DAY
  6. FOLIC ACID [Concomitant]
  7. VITAMIN CAP [Concomitant]

REACTIONS (5)
  - APNOEA [None]
  - CYANOSIS [None]
  - DRUG EXPOSURE DURING PREGNANCY [None]
  - POLYCYTHAEMIA [None]
  - PREMATURE BABY [None]
